FAERS Safety Report 6442140-1 (Version None)
Quarter: 2009Q4

REPORT INFORMATION
  Report Type: 
  Country: None (occurrence: None)
  Receive Date: 20091116
  Receipt Date: 20091109
  Transmission Date: 20100525
  Serious: Yes (Death, Other)
  Sender: FDA-Public Use
  Company Number: PHHY2009DE49106

PATIENT
  Sex: Female

DRUGS (2)
  1. CRANOC 80 RETARD [Suspect]
     Dosage: 80 MG PER DAY
     Route: 048
     Dates: start: 20070101, end: 20070101
  2. FLUVASTATIN [Suspect]
     Route: 048

REACTIONS (7)
  - ACCIDENTAL OVERDOSE [None]
  - BLOOD CREATINE PHOSPHOKINASE INCREASED [None]
  - DEATH [None]
  - LEG AMPUTATION [None]
  - RHABDOMYOLYSIS [None]
  - SEPSIS [None]
  - SURGERY [None]
